FAERS Safety Report 9669161 (Version 1)
Quarter: 2013Q4

REPORT INFORMATION
  Report Type: Spontaneous
  Country: JP (occurrence: JP)
  Receive Date: 20131105
  Receipt Date: 20131105
  Transmission Date: 20140711
  Serious: Yes (Death, Life-Threatening, Hospitalization)
  Sender: FDA-Public Use
  Company Number: JP-ELI_LILLY_AND_COMPANY-JP201310007529

PATIENT
  Age: 63 Year
  Sex: Male

DRUGS (1)
  1. GEMZAR [Suspect]
     Indication: BILE DUCT CANCER STAGE IV
     Route: 042

REACTIONS (5)
  - Upper gastrointestinal haemorrhage [Fatal]
  - Disseminated intravascular coagulation [Unknown]
  - Sepsis [Unknown]
  - Drug-induced liver injury [Unknown]
  - Hepatitis B DNA increased [Unknown]
